FAERS Safety Report 5972607-1 (Version None)
Quarter: 2008Q4

REPORT INFORMATION
  Report Type: 
  Country: None (occurrence: None)
  Receive Date: 20081126
  Receipt Date: 20081126
  Transmission Date: 20090506
  Serious: Yes (Other)
  Sender: FDA-Public Use
  Company Number: None

PATIENT
  Age: 39 Year
  Sex: Female
  Weight: 71.2147 kg

DRUGS (14)
  1. WELLBUTRIN [Suspect]
     Indication: DEPRESSION
     Dosage: 150 1 X PO
     Route: 048
     Dates: start: 20080831, end: 20081122
  2. WELLBUTRIN [Suspect]
     Indication: SMOKING CESSATION THERAPY
     Dosage: 150 1 X PO
     Route: 048
     Dates: start: 20080831, end: 20081122
  3. TRAMADOL HCL [Suspect]
     Indication: PAIN
     Dosage: 50 2X 4 PO
     Route: 048
     Dates: start: 20081031, end: 20081122
  4. PAXIL [Concomitant]
  5. EFFEXORSEROQQEL [Concomitant]
  6. ABILIFY [Concomitant]
  7. DEPAKOTE [Concomitant]
  8. TEGRETOL [Concomitant]
  9. CYMBALTA [Concomitant]
  10. LAMICTAL [Concomitant]
  11. WELLBUTIN [Concomitant]
  12. ACETAMINAPHIENE [Concomitant]
  13. IMITREX [Concomitant]
  14. KEFLEX [Concomitant]

REACTIONS (6)
  - BIPOLAR I DISORDER [None]
  - DEPRESSION [None]
  - EMOTIONAL DISORDER [None]
  - GRAND MAL CONVULSION [None]
  - HEPATITIS C [None]
  - ROAD TRAFFIC ACCIDENT [None]
